FAERS Safety Report 24033722 (Version 1)
Quarter: 2024Q3

REPORT INFORMATION
  Report Type: Report from Study
  Country: DE (occurrence: DE)
  Receive Date: 20240701
  Receipt Date: 20240701
  Transmission Date: 20241017
  Serious: No
  Sender: ROCHE
  Company Number: DE-ROCHE-3269985

PATIENT
  Age: 44 Year
  Sex: Female
  Weight: 65.0 kg

DRUGS (4)
  1. EVRYSDI [Suspect]
     Active Substance: RISDIPLAM
     Indication: Spinal muscular atrophy
     Dosage: LAST DOSE 20/JUL/2022, 05/JUL/2023, 09/JAN/2024,
     Route: 048
     Dates: start: 20201001
  2. MARCUMAR [Concomitant]
     Active Substance: PHENPROCOUMON
     Dates: start: 20080101
  3. PANTOPRAZOLE [Concomitant]
     Active Substance: PANTOPRAZOLE
     Dates: start: 20050101
  4. PHENPROCOUMON [Concomitant]
     Active Substance: PHENPROCOUMON
     Dates: start: 20080101

REACTIONS (9)
  - Neck pain [Not Recovered/Not Resolved]
  - Cubital tunnel syndrome [Not Recovered/Not Resolved]
  - Headache [Recovered/Resolved]
  - Dry skin [Recovered/Resolved]
  - Nasopharyngitis [Recovered/Resolved]
  - Haemoglobin decreased [Unknown]
  - C-reactive protein abnormal [Unknown]
  - Blood creatine phosphokinase abnormal [Unknown]
  - Blood creatinine abnormal [Unknown]

NARRATIVE: CASE EVENT DATE: 20220321
